FAERS Safety Report 23486401 (Version 1)
Quarter: 2024Q1

REPORT INFORMATION
  Report Type: Spontaneous
  Country: US (occurrence: None)
  Receive Date: 20240205
  Receipt Date: 20240205
  Transmission Date: 20240410
  Serious: Yes (Hospitalization)
  Sender: FDA-Public Use
  Company Number: None

PATIENT
  Sex: Male

DRUGS (8)
  1. ADBRY [Suspect]
     Active Substance: TRALOKINUMAB-LDRM
     Indication: Dermatitis atopic
     Dosage: FREQUENCY : EVERY OTHER WEEK;?
     Route: 058
     Dates: start: 20231205
  2. ADBRY [Suspect]
     Active Substance: TRALOKINUMAB-LDRM
     Dosage: FREQUENCY : EVERY OTHER WEEK;?
     Route: 058
  3. DILANTIN [Concomitant]
  4. HYDROXYZINE HYDROCHLORIDE [Concomitant]
     Active Substance: HYDROXYZINE HYDROCHLORIDE
  5. KLONOPIN [Concomitant]
  6. LAMICTAL [Concomitant]
  7. LISINOPRIL [Concomitant]
  8. OMEPRAZOLE [Concomitant]
     Active Substance: OMEPRAZOLE

REACTIONS (1)
  - Hospitalisation [None]
